FAERS Safety Report 12834001 (Version 3)
Quarter: 2016Q4

REPORT INFORMATION
  Report Type: Report from Study
  Country: US (occurrence: US)
  Receive Date: 20161010
  Receipt Date: 20161216
  Transmission Date: 20170207
  Serious: No
  Sender: FDA-Public Use
  Company Number: US-ACTELION-A-US2016-143194

PATIENT
  Age: 26 Year
  Sex: Male
  Weight: 48.98 kg

DRUGS (3)
  1. UPTRAVI [Suspect]
     Active Substance: SELEXIPAG
     Dosage: 200 MCG, QD
     Route: 048
     Dates: end: 20161018
  2. ADEMPAS [Concomitant]
     Active Substance: RIOCIGUAT
     Dosage: 1.5 MG, BID
  3. UPTRAVI [Suspect]
     Active Substance: SELEXIPAG
     Indication: PULMONARY ARTERIAL HYPERTENSION
     Dosage: 200 MCG, BID
     Route: 048
     Dates: start: 20160913

REACTIONS (7)
  - Drug ineffective [Unknown]
  - Nausea [Unknown]
  - Hypotension [Unknown]
  - Vomiting [Unknown]
  - Drug intolerance [Unknown]
  - Headache [Unknown]
  - Pain in jaw [Unknown]
